FAERS Safety Report 23305592 (Version 3)
Quarter: 2024Q1

REPORT INFORMATION
  Report Type: Spontaneous
  Country: DE (occurrence: DE)
  Receive Date: 20231218
  Receipt Date: 20240327
  Transmission Date: 20240410
  Serious: Yes (Other)
  Sender: FDA-Public Use
  Company Number: DE-Desitin-2023-02832

PATIENT
  Sex: Male

DRUGS (6)
  1. LACOSAMIDE [Suspect]
     Active Substance: LACOSAMIDE
     Indication: Partial seizures
     Dosage: MONOTHERAPY
     Route: 065
     Dates: start: 2021
  2. LEVETIRACETAM [Suspect]
     Active Substance: LEVETIRACETAM
     Indication: Partial seizures
     Dosage: UNK
     Route: 065
     Dates: start: 2022
  3. OXCARBAZEPINE [Suspect]
     Active Substance: OXCARBAZEPINE
     Indication: Partial seizures
     Dosage: LOW DOSE, MONOTHERAPY
     Route: 065
     Dates: start: 201706, end: 2021
  4. PERAMPANEL [Suspect]
     Active Substance: PERAMPANEL
     Indication: Partial seizures
     Dosage: 8 MG, Q8H
     Route: 065
     Dates: start: 20230526
  5. SULTHIAME [Suspect]
     Active Substance: SULTHIAME
     Indication: Partial seizures
     Route: 065
     Dates: start: 20230526
  6. VALPROATE [Suspect]
     Active Substance: VALPROIC ACID
     Indication: Partial seizures
     Dosage: 300 MG
     Route: 065
     Dates: start: 20230605

REACTIONS (10)
  - General physical health deterioration [Unknown]
  - Gait disturbance [Unknown]
  - Epilepsy [Unknown]
  - Psychotic disorder [Unknown]
  - Hallucination [Unknown]
  - Dysarthria [Unknown]
  - Fatigue [Unknown]
  - Laziness [Unknown]
  - Eczema [Unknown]
  - Gait disturbance [Unknown]
